FAERS Safety Report 9632647 (Version 3)
Quarter: 2014Q1

REPORT INFORMATION
  Report Type: Report from Study
  Country: US (occurrence: US)
  Receive Date: 20131018
  Receipt Date: 20140227
  Transmission Date: 20141002
  Serious: Yes (Other)
  Sender: FDA-Public Use
  Company Number: PHEH2013US021590

PATIENT
  Age: 67 Year
  Sex: Male

DRUGS (14)
  1. DIOVAN [Suspect]
     Dosage: 1 DF (320 MG), QD (IN THE MORNING)
     Route: 048
     Dates: start: 20031101
  2. COREG [Concomitant]
     Dosage: 1 DF (60 MG), QD
  3. HYDROCHLOROTHIAZIDE [Concomitant]
     Dosage: 1 DF (25 MG), QD
  4. FINASTERIDE [Concomitant]
     Dosage: 1 DF (5 MG), QD
  5. PRAMIPEXOLE [Concomitant]
     Dosage: 1 DF (0.125 MG), QD
  6. DIGOXIN [Concomitant]
     Dosage: 0.25 MG, QD
  7. DOXAZOSIN [Concomitant]
     Dosage: 1 DF (1 MG), QD
  8. LEVOTHYROXIN [Concomitant]
     Dosage: 50 UG, QD
  9. CYMBALTA [Concomitant]
     Dosage: 120 MG, QD
  10. LIOTHYRONINE [Concomitant]
     Dosage: 5 UG, UNK
  11. NITROGLYCERIN [Concomitant]
     Dosage: UNK UKN, AS NEEDED
  12. DEXILANT [Concomitant]
     Dosage: 60 MG, QD
  13. FORTEO [Concomitant]
     Dosage: UNK UKN, QD
  14. LABETALOL [Concomitant]
     Dosage: 100 MG, PRN

REACTIONS (18)
  - Leukaemia [Recovering/Resolving]
  - Gingival bleeding [Unknown]
  - Epistaxis [Unknown]
  - Cardiac failure congestive [Unknown]
  - Ejection fraction decreased [Unknown]
  - Rheumatoid arthritis [Unknown]
  - Cardiomegaly [Unknown]
  - Sleep apnoea syndrome [Unknown]
  - Barrett^s oesophagus [Unknown]
  - Duodenal ulcer [Recovered/Resolved]
  - Gastric ulcer [Unknown]
  - Osteoporosis [Unknown]
  - Gastrointestinal disorder [Unknown]
  - Memory impairment [Unknown]
  - Speech disorder [Unknown]
  - Cardiac disorder [Unknown]
  - Left-handedness [Unknown]
  - Asthenia [Unknown]
